FAERS Safety Report 6707402-9 (Version None)
Quarter: 2010Q2

REPORT INFORMATION
  Report Type: 
  Country: None (occurrence: None)
  Receive Date: 20100503
  Receipt Date: 20090817
  Transmission Date: 20101027
  Serious: No
  Sender: FDA-Public Use
  Company Number: US-ASTRAZENECA-2009SE08511

PATIENT
  Age: 85 Year
  Sex: Male

DRUGS (3)
  1. NEXIUM [Suspect]
     Indication: OESOPHAGITIS
     Route: 048
     Dates: start: 19990101
  2. PRILOSEC [Suspect]
     Indication: OESOPHAGITIS
     Route: 048
     Dates: start: 19990101
  3. COUMADIN [Concomitant]

REACTIONS (2)
  - OSTEOPENIA [None]
  - OSTEOPOROSIS [None]
